FAERS Safety Report 22181287 (Version 2)
Quarter: 2025Q1

REPORT INFORMATION
  Report Type: Spontaneous
  Country: GB (occurrence: GB)
  Receive Date: 20230406
  Receipt Date: 20250319
  Transmission Date: 20250409
  Serious: Yes (Other)
  Sender: TAKEDA
  Company Number: GB-LUNDBECK-DKLU3060201

PATIENT
  Age: 37 Year
  Sex: Male

DRUGS (3)
  1. BRINTELLIX [Suspect]
     Active Substance: VORTIOXETINE HYDROBROMIDE
     Indication: Depression
  2. BRINTELLIX [Suspect]
     Active Substance: VORTIOXETINE HYDROBROMIDE
  3. BRINTELLIX [Suspect]
     Active Substance: VORTIOXETINE HYDROBROMIDE

REACTIONS (2)
  - Generalised tonic-clonic seizure [Unknown]
  - Seizure [Unknown]

NARRATIVE: CASE EVENT DATE: 20220101
